FAERS Safety Report 19902188 (Version 2)
Quarter: 2021Q4

REPORT INFORMATION
  Report Type: Report from Study
  Country: US (occurrence: US)
  Receive Date: 20210930
  Receipt Date: 20211011
  Transmission Date: 20220303
  Serious: No
  Sender: FDA-Public Use
  Company Number: US-KYOWAKIRIN-2021BKK016209

PATIENT

DRUGS (2)
  1. CRYSVITA [Suspect]
     Active Substance: BUROSUMAB-TWZA
     Indication: Hereditary hypophosphataemic rickets
     Dosage: 18 MG
     Route: 065
  2. CRYSVITA [Suspect]
     Active Substance: BUROSUMAB-TWZA
     Dosage: 20 MG, EVERY TWO WEEKS
     Route: 058

REACTIONS (5)
  - Blood phosphorus decreased [Unknown]
  - Blood phosphorus increased [Unknown]
  - Product quality issue [Unknown]
  - Product storage error [Unknown]
  - Incorrect dose administered [Recovered/Resolved]
